FAERS Safety Report 10017710 (Version 2)
Quarter: 2014Q1

REPORT INFORMATION
  Report Type: Spontaneous
  Country: US (occurrence: US)
  Receive Date: 20140318
  Receipt Date: 20140318
  Transmission Date: 20141002
  Serious: No
  Sender: FDA-Public Use
  Company Number: US-BRISTOL-MYERS SQUIBB COMPANY-17443631

PATIENT
  Age: 62 Year
  Sex: Male

DRUGS (1)
  1. ERBITUX [Suspect]
     Indication: TONSIL CANCER
     Dosage: INTERR 27FEB13?RESTART 13MAR13
     Route: 042
     Dates: start: 20130130

REACTIONS (2)
  - Speech disorder [Unknown]
  - Mucosal inflammation [Unknown]
